FAERS Safety Report 16952833 (Version 2)
Quarter: 2020Q2

REPORT INFORMATION
  Report Type: Spontaneous
  Country: DK (occurrence: DK)
  Receive Date: 20191023
  Receipt Date: 20200513
  Transmission Date: 20200713
  Serious: Yes (Hospitalization)
  Sender: FDA-Public Use
  Company Number: DK-HTU-2019DK019685

PATIENT
  Age: 55 Year
  Sex: Female

DRUGS (10)
  1. BENDROZA [Concomitant]
     Active Substance: BENDROFLUMETHIAZIDE\POTASSIUM CHLORIDE
     Indication: DIURETIC THERAPY
     Dosage: 1 DOSAGE FORM, QD
     Route: 048
     Dates: start: 20190729
  2. LIDOCAIN                           /00033401/ [Concomitant]
     Active Substance: LIDOCAINE
     Indication: PAIN
     Dosage: 5 MILLILITER, PRN
     Route: 048
     Dates: start: 20190927
  3. CHAMPIX [Concomitant]
     Active Substance: VARENICLINE TARTRATE
     Indication: EX-TOBACCO USER
     Dosage: 2 MILLIGRAM, QD
     Route: 048
     Dates: start: 20190717
  4. AKYNZEO [Suspect]
     Active Substance: NETUPITANT\PALONOSETRON HYDROCHLORIDE
     Indication: PROPHYLAXIS OF NAUSEA AND VOMITING
     Dosage: 1 DOSAGE FORM, SINGLE
     Route: 048
     Dates: start: 20190923
  5. NAVELBINE [Interacting]
     Active Substance: VINORELBINE TARTRATE
     Indication: NON-SMALL CELL LUNG CANCER
     Dosage: UNK, UNKNOWN
     Route: 048
     Dates: start: 20190923
  6. MYCOSTATIN [Concomitant]
     Active Substance: NYSTATIN
     Indication: ORAL CANDIDIASIS
     Dosage: 3 MILLILITER, QD
     Route: 048
     Dates: start: 20190927
  7. PREDNISOLONE. [Concomitant]
     Active Substance: PREDNISOLONE
     Indication: ADRENOCORTICAL STEROID THERAPY
     Dosage: 50 MILLIGRAM, UNKNOWN
     Route: 048
     Dates: start: 20190923
  8. NIDAZOL                            /00012501/ [Interacting]
     Active Substance: METRONIDAZOLE
     Indication: ORAL CANDIDIASIS
     Dosage: 400 MILLIGRAM, QD
     Route: 048
     Dates: start: 20190916, end: 20190928
  9. CARBOPLATIN ^ACCORD^ [Interacting]
     Active Substance: CARBOPLATIN
     Indication: NON-SMALL CELL LUNG CANCER
     Dosage: 500 MILLIGRAM, UNKNOWN
     Route: 042
     Dates: start: 20190923
  10. MORFIN DAK [Concomitant]
     Active Substance: MORPHINE HYDROCHLORIDE
     Indication: PAIN
     Dosage: 5 MILLIGRAM, PRN
     Route: 048
     Dates: start: 20190927

REACTIONS (21)
  - Stomatitis [Not Recovered/Not Resolved]
  - Amnesia [Unknown]
  - Gastrointestinal disorder [Recovered/Resolved]
  - Dizziness [Not Recovered/Not Resolved]
  - Sepsis [Recovered/Resolved]
  - Alopecia [Unknown]
  - Drug interaction [Not Recovered/Not Resolved]
  - Temperature intolerance [Not Recovered/Not Resolved]
  - Neutropenia [Recovered/Resolved]
  - Hallucination, auditory [Unknown]
  - Immune system disorder [Unknown]
  - Dehydration [Not Recovered/Not Resolved]
  - Constipation [Not Recovered/Not Resolved]
  - Fatigue [Not Recovered/Not Resolved]
  - Oral fungal infection [Unknown]
  - Mucosal disorder [Recovered/Resolved]
  - Skin exfoliation [Not Recovered/Not Resolved]
  - Liver disorder [Recovered/Resolved]
  - Pyrexia [Not Recovered/Not Resolved]
  - Leukopenia [Not Recovered/Not Resolved]
  - Ileus [Recovered/Resolved]

NARRATIVE: CASE EVENT DATE: 201909
